FAERS Safety Report 23952154 (Version 4)
Quarter: 2024Q3

REPORT INFORMATION
  Report Type: Report from Study
  Country: CA (occurrence: None)
  Receive Date: 20240607
  Receipt Date: 20240830
  Transmission Date: 20241017
  Serious: Yes (Life-Threatening, Hospitalization, Other)
  Sender: ASTRAZENECA
  Company Number: 2024A126985

PATIENT
  Sex: Female

DRUGS (6)
  1. FASENRA [Suspect]
     Active Substance: BENRALIZUMAB
     Indication: Asthma
     Dosage: 30.0MG UNKNOWN
     Route: 058
     Dates: start: 20230817
  2. FASENRA [Suspect]
     Active Substance: BENRALIZUMAB
     Indication: Asthma
     Dosage: 30.0MG UNKNOWN
     Route: 058
     Dates: start: 20240402
  3. SYMBICORT [Concomitant]
     Active Substance: BUDESONIDE\FORMOTEROL FUMARATE DIHYDRATE
     Dosage: 200 II QID
  4. INCRUSE ELLIPTA [Concomitant]
     Active Substance: UMECLIDINIUM BROMIDE
     Dosage: 62.5 I OD
  5. APO-ALLOPURNOL [Concomitant]
  6. HYDROCHLOROTHIAZIDE\TELMISARTAN [Concomitant]
     Active Substance: HYDROCHLOROTHIAZIDE\TELMISARTAN

REACTIONS (14)
  - Bile duct cancer [Unknown]
  - Hallucination [Unknown]
  - Pneumonia [Unknown]
  - Pleural effusion [Unknown]
  - Shock [Unknown]
  - Dehydration [Unknown]
  - Blood sodium increased [Unknown]
  - Blood chloride increased [Unknown]
  - Asthenia [Unknown]
  - Hypophagia [Unknown]
  - Gait inability [Unknown]
  - Confusional state [Unknown]
  - Oedema peripheral [Unknown]
  - Eating disorder [Unknown]
